FAERS Safety Report 7001449-3 (Version None)
Quarter: 2010Q3

REPORT INFORMATION
  Report Type: 
  Country: None (occurrence: None)
  Receive Date: 20100920
  Receipt Date: 20090916
  Transmission Date: 20110219
  Serious: No
  Sender: FDA-Public Use
  Company Number: US-ASTRAZENECA-2009SE13572

PATIENT
  Age: 25438 Day
  Sex: Male

DRUGS (1)
  1. SEROQUEL [Suspect]
     Indication: TREMOR
     Route: 048
     Dates: start: 20090914

REACTIONS (3)
  - GAIT DISTURBANCE [None]
  - SOMNOLENCE [None]
  - VISUAL IMPAIRMENT [None]
